FAERS Safety Report 9614339 (Version 2)
Quarter: 2013Q4

REPORT INFORMATION
  Report Type: Spontaneous
  Country: FR (occurrence: FR)
  Receive Date: 20131011
  Receipt Date: 20131011
  Transmission Date: 20140711
  Serious: Yes (Other)
  Sender: FDA-Public Use
  Company Number: FR-JNJFOC-20130708257

PATIENT
  Age: 61 Year
  Sex: Female
  Weight: 58 kg

DRUGS (3)
  1. SIMPONI [Suspect]
     Indication: PRODUCT USED FOR UNKNOWN INDICATION
     Route: 058
     Dates: start: 201211
  2. METOJECT [Suspect]
     Indication: PRODUCT USED FOR UNKNOWN INDICATION
     Route: 058
     Dates: start: 201204
  3. CORGARD [Concomitant]
     Indication: EXTRASYSTOLES
     Dosage: DAILY PER OS
     Route: 065
     Dates: start: 2000

REACTIONS (4)
  - Tooth fracture [Unknown]
  - Oral fungal infection [Unknown]
  - Oral herpes [Unknown]
  - Arthralgia [Unknown]
